FAERS Safety Report 22388878 (Version 1)
Quarter: 2023Q2

REPORT INFORMATION
  Report Type: Spontaneous
  Country: ES (occurrence: ES)
  Receive Date: 20230531
  Receipt Date: 20230531
  Transmission Date: 20230721
  Serious: Yes (Other)
  Sender: FDA-Public Use
  Company Number: ES-ASTELLAS-2023US015509

PATIENT
  Sex: Female

DRUGS (6)
  1. TAMSULOSIN [Suspect]
     Active Substance: TAMSULOSIN
     Indication: Product used for unknown indication
     Dosage: UNK (UNKNOWN FREQ.)
     Route: 065
  2. ROBAXISAL [Suspect]
     Active Substance: ASPIRIN\METHOCARBAMOL
     Indication: Product used for unknown indication
     Dosage: UNK (UNKNOWN FREQUENCY)
     Route: 065
  3. CELEBREX [Suspect]
     Active Substance: CELECOXIB
     Indication: Product used for unknown indication
     Dosage: UNK (UNKNOWN FREQUENCY)
     Route: 065
  4. ALPRAZOLAM [Concomitant]
     Active Substance: ALPRAZOLAM
     Indication: Product used for unknown indication
     Dosage: UNK (UNKNOWN FREQUENCY, RETARD)
     Route: 065
  5. DIAZEPAM [Concomitant]
     Active Substance: DIAZEPAM
     Indication: Product used for unknown indication
     Dosage: UNK (UNKNOWN FREQUENCY) (POWDER)
     Route: 065
  6. ALPRAZOLAM [Concomitant]
     Active Substance: ALPRAZOLAM
     Indication: Product used for unknown indication
     Dosage: UNK (UNKNOWN FREQUENCY)
     Route: 060

REACTIONS (5)
  - Coma [Unknown]
  - Renal failure [Unknown]
  - Burnout syndrome [Unknown]
  - Intentional product use issue [Unknown]
  - Off label use [Unknown]

NARRATIVE: CASE EVENT DATE: 20220201
